FAERS Safety Report 22530463 (Version 1)
Quarter: 2023Q2

REPORT INFORMATION
  Report Type: Spontaneous
  Country: CN (occurrence: None)
  Receive Date: 20230607
  Receipt Date: 20230607
  Transmission Date: 20230721
  Serious: Yes (Other)
  Sender: FDA-Public Use
  Company Number: CN-ROCHE-3360035

PATIENT
  Sex: Female
  Weight: 78 kg

DRUGS (3)
  1. MABTHERA [Suspect]
     Active Substance: RITUXIMAB
     Indication: Follicular lymphoma
     Route: 041
     Dates: start: 20230523
  2. MABTHERA [Suspect]
     Active Substance: RITUXIMAB
     Route: 041
     Dates: start: 20230524
  3. SODIUM CHLORIDE [Concomitant]
     Active Substance: SODIUM CHLORIDE
     Route: 041
     Dates: start: 20230523

REACTIONS (6)
  - Chest discomfort [Recovering/Resolving]
  - Dyspnoea [Recovering/Resolving]
  - Dizziness [Unknown]
  - Nausea [Unknown]
  - Oxygen saturation decreased [Recovering/Resolving]
  - Rash [Recovering/Resolving]

NARRATIVE: CASE EVENT DATE: 20230523
